FAERS Safety Report 23785275 (Version 1)
Quarter: 2024Q2

REPORT INFORMATION
  Report Type: Spontaneous
  Country: US (occurrence: US)
  Receive Date: 20240425
  Receipt Date: 20240425
  Transmission Date: 20240716
  Serious: No
  Sender: FDA-Public Use
  Company Number: US-Calliditas-2024CAL00624

PATIENT
  Age: 48 Year
  Sex: Female
  Weight: 78.5 kg

DRUGS (2)
  1. TARPEYO [Suspect]
     Active Substance: BUDESONIDE
     Indication: IgA nephropathy
     Dosage: 8MG (4MG CAPSULES) ONCE DAILY
     Route: 048
     Dates: start: 20240313
  2. FILSPARI [Concomitant]
     Active Substance: SPARSENTAN

REACTIONS (3)
  - Hypotension [Recovered/Resolved]
  - Prescribed underdose [Unknown]
  - Joint swelling [Recovered/Resolved]
